FAERS Safety Report 9779459 (Version 1)
Quarter: 2013Q4

REPORT INFORMATION
  Report Type: Spontaneous
  Country: IQ (occurrence: IQ)
  Receive Date: 20131223
  Receipt Date: 20131223
  Transmission Date: 20140711
  Serious: Yes (Death)
  Sender: FDA-Public Use
  Company Number: IQ-ACTAVIS-2013-23112

PATIENT
  Sex: 0

DRUGS (1)
  1. DOCETAXEL (UNKNOWN) [Suspect]
     Indication: PRODUCT USED FOR UNKNOWN INDICATION
     Dosage: 80 MG, UNK
     Route: 065

REACTIONS (2)
  - Death [Fatal]
  - Unevaluable event [Fatal]
